FAERS Safety Report 7052631-0 (Version None)
Quarter: 2010Q4

REPORT INFORMATION
  Report Type: 
  Country: None (occurrence: None)
  Receive Date: 20101019
  Receipt Date: 20101011
  Transmission Date: 20110411
  Serious: Yes (Hospitalization, Other)
  Sender: FDA-Public Use
  Company Number: US-ABBOTT-10P-163-0677296-00

PATIENT
  Sex: Male
  Weight: 83.99 kg

DRUGS (6)
  1. NIASPAN [Suspect]
     Indication: BLOOD TRIGLYCERIDES INCREASED
     Route: 048
     Dates: start: 20100101
  2. NIASPAN [Suspect]
     Indication: HIGH DENSITY LIPOPROTEIN DECREASED
  3. SIMVASTATIN [Suspect]
     Indication: BLOOD TRIGLYCERIDES INCREASED
  4. ASPIRIN [Concomitant]
     Indication: CARDIAC DISORDER
     Route: 048
  5. ALLOPURINOL [Concomitant]
     Indication: GOUT
  6. PLAVIX [Concomitant]
     Indication: CORONARY ARTERIAL STENT INSERTION

REACTIONS (7)
  - ARTHRALGIA [None]
  - CORONARY ARTERY OCCLUSION [None]
  - FALL [None]
  - FATIGUE [None]
  - FLUSHING [None]
  - JOINT EFFUSION [None]
  - JOINT INSTABILITY [None]
